FAERS Safety Report 8308997-4 (Version None)
Quarter: 2012Q2

REPORT INFORMATION
  Report Type: 
  Country: None (occurrence: None)
  Receive Date: 20120424
  Receipt Date: 20120417
  Transmission Date: 20120825
  Serious: Yes (Hospitalization)
  Sender: FDA-Public Use
  Company Number: FR-PFIZER INC-2012094513

PATIENT
  Age: 65 Year
  Sex: Female

DRUGS (8)
  1. SULFASALAZINE [Suspect]
     Indication: PROCTOCOLITIS
     Dosage: UNK
     Route: 048
     Dates: start: 20000101, end: 20120101
  2. PREDNISOLONE [Concomitant]
  3. CIRKAN [Concomitant]
  4. PRAVASTATIN SODIUM [Suspect]
     Indication: HYPERCHOLESTEROLAEMIA
     Dosage: UNK
     Route: 048
  5. PENTASA [Concomitant]
  6. IMURAN [Concomitant]
  7. ESCITALOPRAM [Suspect]
     Indication: DEPRESSION
     Dosage: UNK
  8. LANSOPRAZOLE [Suspect]
     Indication: DEPRESSION
     Dosage: UNK
     Route: 048

REACTIONS (2)
  - PARAESTHESIA [None]
  - MALAISE [None]
